FAERS Safety Report 5352639-7 (Version None)
Quarter: 2007Q2

REPORT INFORMATION
  Report Type: 
  Country: None (occurrence: None)
  Receive Date: 20070518
  Receipt Date: 20070223
  Transmission Date: 20071010
  Serious: No
  Sender: FDA-Public Use
  Company Number: TPA2007A00482

PATIENT
  Sex: Female

DRUGS (4)
  1. ROZEREM [Suspect]
     Indication: INSOMNIA
     Dosage: 16 MG, HS, PER ORAL
     Route: 048
     Dates: start: 20061101
  2. HALCION [Concomitant]
  3. KLONOPIN [Concomitant]
  4. SEROQUEL [Concomitant]

REACTIONS (2)
  - NO ADVERSE EFFECT [None]
  - PRESCRIBED OVERDOSE [None]
